FAERS Safety Report 25485375 (Version 3)
Quarter: 2025Q4

REPORT INFORMATION
  Report Type: Spontaneous
  Country: US (occurrence: US)
  Receive Date: 20250626
  Receipt Date: 20251103
  Transmission Date: 20260118
  Serious: Yes (Other)
  Sender: SANOFI AVENTIS
  Company Number: US-SA-2025SA180266

PATIENT
  Age: 69 Year
  Sex: Female

DRUGS (59)
  1. REZUROCK [Suspect]
     Active Substance: BELUMOSUDIL
     Indication: Chronic graft versus host disease
     Dosage: 200 MG, QD
     Route: 048
     Dates: start: 202501
  2. REZUROCK [Suspect]
     Active Substance: BELUMOSUDIL
     Indication: Acute lymphocytic leukaemia
  3. REZUROCK [Suspect]
     Active Substance: BELUMOSUDIL
     Indication: Graft versus host disease
  4. JAKAFI [Concomitant]
     Active Substance: RUXOLITINIB
     Dosage: UNK
  5. ASMANEX [Concomitant]
     Active Substance: MOMETASONE FUROATE
     Dosage: UNK
  6. ASMANEX [Concomitant]
     Active Substance: MOMETASONE FUROATE
  7. ASMANEX [Concomitant]
     Active Substance: MOMETASONE FUROATE
  8. AZITHROMYCIN [Concomitant]
     Active Substance: AZITHROMYCIN
     Dosage: UNK
  9. AZITHROMYCIN [Concomitant]
     Active Substance: AZITHROMYCIN
  10. AZITHROMYCIN [Concomitant]
     Active Substance: AZITHROMYCIN
  11. CRESTOR [Concomitant]
     Active Substance: ROSUVASTATIN CALCIUM
     Dosage: UNK
  12. CRESTOR [Concomitant]
     Active Substance: ROSUVASTATIN CALCIUM
  13. CRESTOR [Concomitant]
     Active Substance: ROSUVASTATIN CALCIUM
  14. DOXYCYCLINE HYCLATE [Concomitant]
     Active Substance: DOXYCYCLINE HYCLATE
     Dosage: UNK
  15. DOXYCYCLINE HYCLATE [Concomitant]
     Active Substance: DOXYCYCLINE HYCLATE
  16. DOXYCYCLINE HYCLATE [Concomitant]
     Active Substance: DOXYCYCLINE HYCLATE
  17. ELIQUIS [Concomitant]
     Active Substance: APIXABAN
     Dosage: UNK
  18. ELIQUIS [Concomitant]
     Active Substance: APIXABAN
  19. FAMOTIDINE [Concomitant]
     Active Substance: FAMOTIDINE
     Dosage: UNK
  20. FAMOTIDINE [Concomitant]
     Active Substance: FAMOTIDINE
  21. IRON [Concomitant]
     Active Substance: IRON
     Dosage: UNK
  22. IRON [Concomitant]
     Active Substance: IRON
  23. LEVOTHYROXINE SODIUM [Concomitant]
     Active Substance: LEVOTHYROXINE SODIUM
     Dosage: UNK
  24. LINZESS [Concomitant]
     Active Substance: LINACLOTIDE
     Dosage: UNK
  25. LINZESS [Concomitant]
     Active Substance: LINACLOTIDE
  26. LORAZEPAM [Concomitant]
     Active Substance: LORAZEPAM
     Dosage: UNK
  27. LORAZEPAM [Concomitant]
     Active Substance: LORAZEPAM
  28. LOSARTAN POTASSIUM [Concomitant]
     Active Substance: LOSARTAN POTASSIUM
     Dosage: UNK
  29. MEMANTINE [Concomitant]
     Active Substance: MEMANTINE
     Dosage: UNK
  30. METOPROLOL TARTRATE [Concomitant]
     Active Substance: METOPROLOL TARTRATE
     Dosage: UNK
  31. METOPROLOL TARTRATE [Concomitant]
     Active Substance: METOPROLOL TARTRATE
  32. MIRALAX [Concomitant]
     Active Substance: POLYETHYLENE GLYCOL 3350
     Dosage: UNK
  33. MIRALAX [Concomitant]
     Active Substance: POLYETHYLENE GLYCOL 3350
  34. MONTELUKAST SODIUM [Concomitant]
     Active Substance: MONTELUKAST SODIUM
     Dosage: UNK
  35. OXYCODONE [Concomitant]
     Active Substance: OXYCODONE
     Dosage: UNK
  36. OXYCODONE [Concomitant]
     Active Substance: OXYCODONE
  37. POTASSIUM CHLORIDE [Concomitant]
     Active Substance: POTASSIUM CHLORIDE
     Dosage: UNK
  38. POTASSIUM CHLORIDE [Concomitant]
     Active Substance: POTASSIUM CHLORIDE
  39. PREDNISONE [Concomitant]
     Active Substance: PREDNISONE
     Dosage: UNK
  40. PREDNISONE [Concomitant]
     Active Substance: PREDNISONE
  41. PROCHLORPERAZINE MALEATE [Concomitant]
     Active Substance: PROCHLORPERAZINE MALEATE
     Dosage: UNK
  42. REFRESH P.M. [Concomitant]
     Active Substance: MINERAL OIL\PETROLATUM
     Dosage: UNK
  43. RESTASIS [Concomitant]
     Active Substance: CYCLOSPORINE
     Dosage: UNK
  44. RESTASIS [Concomitant]
     Active Substance: CYCLOSPORINE
  45. TEMAZEPAM [Concomitant]
     Active Substance: TEMAZEPAM
     Dosage: UNK
  46. TEMAZEPAM [Concomitant]
     Active Substance: TEMAZEPAM
  47. URSODIOL [Concomitant]
     Active Substance: URSODIOL
     Dosage: UNK
  48. URSODIOL [Concomitant]
     Active Substance: URSODIOL
  49. VITAMIN D3 [Concomitant]
     Active Substance: CHOLECALCIFEROL
     Dosage: UNK
  50. VITAMIN D3 [Concomitant]
     Active Substance: CHOLECALCIFEROL
  51. XANAX [Concomitant]
     Active Substance: ALPRAZOLAM
     Dosage: UNK
  52. XANAX [Concomitant]
     Active Substance: ALPRAZOLAM
  53. MONTELUKAST [Concomitant]
     Active Substance: MONTELUKAST
  54. REFRESH CLASSIC [Concomitant]
     Active Substance: POLYVINYL ALCOHOL\POVIDONE
  55. LEVOTHYROXINE [Concomitant]
     Active Substance: LEVOTHYROXINE
  56. B complex with folic acid [Concomitant]
  57. LOSARTAN [Concomitant]
     Active Substance: LOSARTAN
  58. PROCHLORPERAZINE [Concomitant]
     Active Substance: PROCHLORPERAZINE
  59. MEMANTINE [Concomitant]
     Active Substance: MEMANTINE

REACTIONS (6)
  - Pneumonia [Recovering/Resolving]
  - Feeling abnormal [Unknown]
  - Fatigue [Unknown]
  - Dyspnoea [Unknown]
  - Product use in unapproved indication [Unknown]
  - Bronchitis [Recovering/Resolving]
